FAERS Safety Report 7024889-5 (Version None)
Quarter: 2010Q4

REPORT INFORMATION
  Report Type: 
  Country: None (occurrence: None)
  Receive Date: 20101001
  Receipt Date: 20100921
  Transmission Date: 20110411
  Serious: Yes (Death)
  Sender: FDA-Public Use
  Company Number: JP-MERCK-1009USA04262

PATIENT
  Age: 65 Year
  Sex: Male

DRUGS (5)
  1. EMEND [Suspect]
     Indication: PROPHYLAXIS OF NAUSEA AND VOMITING
     Route: 048
     Dates: start: 20100830, end: 20100830
  2. EMEND [Suspect]
     Route: 048
     Dates: start: 20100831, end: 20100903
  3. ALIMTA [Suspect]
     Route: 042
  4. ALOXI [Concomitant]
     Route: 065
  5. DEXART [Concomitant]
     Route: 065

REACTIONS (3)
  - GASTROINTESTINAL NECROSIS [None]
  - INTESTINAL PERFORATION [None]
  - SEPSIS [None]
